FAERS Safety Report 23833254 (Version 1)
Quarter: 2024Q2

REPORT INFORMATION
  Report Type: Spontaneous
  Country: US (occurrence: US)
  Receive Date: 20240508
  Receipt Date: 20240508
  Transmission Date: 20240716
  Serious: No
  Sender: FDA-Public Use
  Company Number: US-MYLANLABS-2024M1040430

PATIENT

DRUGS (2)
  1. HYDROCHLOROTHIAZIDE\METOPROLOL TARTRATE [Suspect]
     Active Substance: HYDROCHLOROTHIAZIDE\METOPROLOL TARTRATE
     Indication: Hypertension
     Dosage: UNK, TID (3 25 ML PILLS PER DAY)
     Route: 065
  2. HYDROCHLOROTHIAZIDE\METOPROLOL TARTRATE [Suspect]
     Active Substance: HYDROCHLOROTHIAZIDE\METOPROLOL TARTRATE
     Dosage: UNK, BID (2 PER DAY)
     Route: 065

REACTIONS (3)
  - Skin odour abnormal [Unknown]
  - Headache [Unknown]
  - Product formulation issue [Unknown]
